FAERS Safety Report 5112723-X (Version None)
Quarter: 2006Q3

REPORT INFORMATION
  Report Type: 
  Country: None (occurrence: None)
  Receive Date: 20060922
  Receipt Date: 20060918
  Transmission Date: 20061208
  Serious: Yes (Death, Hospitalization)
  Sender: FDA-Public Use
  Company Number: KE-GLAXOSMITHKLINE-B0438780A

PATIENT
  Sex: Male
  Weight: 1 kg

DRUGS (3)
  1. COMBIVIR [Suspect]
     Indication: ANTIVIRAL PROPHYLAXIS
  2. NELFINAVIR [Suspect]
     Indication: ANTIVIRAL PROPHYLAXIS
  3. FOLATE [Concomitant]

REACTIONS (7)
  - FEEDING DISORDER NEONATAL [None]
  - HYPOGLYCAEMIA [None]
  - HYPOTHERMIA [None]
  - PREMATURE BABY [None]
  - RESPIRATORY DISTRESS [None]
  - SKIN ATROPHY [None]
  - SMALL FOR DATES BABY [None]
